FAERS Safety Report 9360018 (Version 1)
Quarter: 2013Q2

REPORT INFORMATION
  Report Type: Report from Study
  Country: AR (occurrence: AR)
  Receive Date: 20130621
  Receipt Date: 20130621
  Transmission Date: 20140414
  Serious: Yes (Hospitalization)
  Sender: FDA-Public Use
  Company Number: PHHY2013AR062474

PATIENT
  Sex: Female

DRUGS (1)
  1. ONBREZ [Suspect]
     Indication: CHRONIC OBSTRUCTIVE PULMONARY DISEASE
     Dosage: UNK
     Route: 048
     Dates: end: 201210

REACTIONS (5)
  - Breast cancer [Recovering/Resolving]
  - Breast pain [Recovering/Resolving]
  - Lymph node pain [Not Recovered/Not Resolved]
  - Dysuria [Not Recovered/Not Resolved]
  - Alopecia [Not Recovered/Not Resolved]
